FAERS Safety Report 20135605 (Version 1)
Quarter: 2021Q4

REPORT INFORMATION
  Report Type: Spontaneous
  Country: US (occurrence: None)
  Receive Date: 20211201
  Receipt Date: 20211201
  Transmission Date: 20220303
  Serious: Yes (Hospitalization, Other)
  Sender: FDA-Public Use
  Company Number: None

PATIENT
  Age: 73 Year
  Sex: Male

DRUGS (1)
  1. TRAZODONE HCL [Suspect]
     Active Substance: TRAZODONE HYDROCHLORIDE
     Indication: Schizoaffective disorder
     Dosage: 1/2 TAB
     Dates: start: 20210806, end: 20210810

REACTIONS (4)
  - Hypotension [None]
  - Syncope [None]
  - Sedation [None]
  - Unresponsive to stimuli [None]

NARRATIVE: CASE EVENT DATE: 20210810
